FAERS Safety Report 8831398 (Version 1)
Quarter: 2012Q4

REPORT INFORMATION
  Report Type: Report from Study
  Country: CA (occurrence: CA)
  Receive Date: 20121009
  Receipt Date: 20121009
  Transmission Date: 20130627
  Serious: Yes (Other)
  Sender: FDA-Public Use
  Company Number: CA-JNJFOC-20120911501

PATIENT
  Age: 59 Year
  Sex: Female
  Weight: 67.8 kg

DRUGS (7)
  1. REMICADE [Suspect]
     Indication: PSORIATIC ARTHROPATHY
     Route: 042
     Dates: start: 20111114
  2. REMICADE [Suspect]
     Indication: PSORIATIC ARTHROPATHY
     Route: 042
     Dates: start: 20120704
  3. REMICADE [Suspect]
     Indication: PSORIATIC ARTHROPATHY
     Dosage: 8th iinfusion
     Route: 042
     Dates: start: 20120925
  4. PARACETAMOL W/TRAMADOL [Concomitant]
     Indication: DIZZINESS
     Dosage: 1 dose (tablet) equals to 325/37.5 mg
     Route: 065
  5. PARACETAMOL W/TRAMADOL [Concomitant]
     Indication: HEADACHE
     Dosage: 1 dose (tablet) equals to 325/37.5 mg
     Route: 065
  6. PARACETAMOL W/TRAMADOL [Concomitant]
     Indication: ARTHRALGIA
     Dosage: 1 dose (tablet) equals to 325/37.5 mg
     Route: 065
  7. MTX [Concomitant]
     Dosage: 1 dose equals to 1 tablet
     Route: 048

REACTIONS (8)
  - Blood pressure increased [Not Recovered/Not Resolved]
  - Venomous sting [Not Recovered/Not Resolved]
  - Infusion related reaction [Recovering/Resolving]
  - Oedema peripheral [Unknown]
  - Pruritus [Recovered/Resolved]
  - Headache [Recovering/Resolving]
  - Dizziness [Recovering/Resolving]
  - Pain [Not Recovered/Not Resolved]
